FAERS Safety Report 8389152-9 (Version None)
Quarter: 2012Q2

REPORT INFORMATION
  Report Type: 
  Country: None (occurrence: None)
  Receive Date: 20120528
  Receipt Date: 20120523
  Transmission Date: 20120825
  Serious: Yes (Other)
  Sender: FDA-Public Use
  Company Number: PHHY2012BR044880

PATIENT
  Sex: Female

DRUGS (1)
  1. EXELON [Suspect]
     Indication: AMNESIA
     Dosage: 4.6 MG/24 HOURS
     Route: 062

REACTIONS (3)
  - FALL [None]
  - FEMUR FRACTURE [None]
  - UPPER LIMB FRACTURE [None]
